FAERS Safety Report 8060246-0 (Version None)
Quarter: 2012Q1

REPORT INFORMATION
  Report Type: 
  Country: None (occurrence: None)
  Receive Date: 20120120
  Receipt Date: 20111024
  Transmission Date: 20120608
  Serious: No
  Sender: FDA-Public Use
  Company Number: US-NOVEN-11US003490

PATIENT
  Sex: Female

DRUGS (6)
  1. CLONIDINE [Concomitant]
     Indication: HYPERTENSION
     Dosage: 0.2 MG, UNK
     Route: 048
  2. XANAX [Concomitant]
     Route: 048
  3. LOVASTATIN [Concomitant]
     Route: 048
  4. FENTANYL [Suspect]
     Indication: ABDOMINAL ADHESIONS
  5. FENTANYL [Suspect]
     Indication: PAIN
     Dosage: 25 UG/HR, Q72HRS
     Route: 062
     Dates: start: 20111017, end: 20111020
  6. HYDROCODONE BITARTRATE [Concomitant]
     Indication: PAIN
     Route: 048

REACTIONS (6)
  - CONFUSIONAL STATE [None]
  - GAIT DISTURBANCE [None]
  - HEART RATE DECREASED [None]
  - SOMNOLENCE [None]
  - DYSPNOEA [None]
  - DYSARTHRIA [None]
